FAERS Safety Report 7204950-2 (Version None)
Quarter: 2010Q4

REPORT INFORMATION
  Report Type: 
  Country: None (occurrence: None)
  Receive Date: 20101230
  Receipt Date: 20101213
  Transmission Date: 20110411
  Serious: No
  Sender: FDA-Public Use
  Company Number: US-B.I. PHARMACEUTICALS,INC./RIDGEFIELD-2010-BP-14519BP

PATIENT
  Sex: Male

DRUGS (3)
  1. ZANTAC 150 [Suspect]
     Indication: GASTRIC ULCER
     Route: 048
     Dates: start: 20100801, end: 20101213
  2. ZANTAC 150 [Suspect]
     Indication: DYSPEPSIA
  3. NEXIUM [Concomitant]
     Indication: ULCER
     Dates: start: 20090101, end: 20101201

REACTIONS (1)
  - DRUG SCREEN FALSE POSITIVE [None]
